FAERS Safety Report 4427260-5 (Version None)
Quarter: 2004Q3

REPORT INFORMATION
  Report Type: 
  Country: None (occurrence: None)
  Receive Date: 20040813
  Receipt Date: 20040813
  Transmission Date: 20050211
  Serious: Yes (Other)
  Sender: FDA-Public Use
  Company Number: None

PATIENT
  Age: 52 Year
  Sex: Female
  Weight: 83.0083 kg

DRUGS (1)
  1. OXYCONTIN [Suspect]
     Indication: SPONDYLOSIS
     Dosage: ONE TAB PO Q 8 H
     Route: 048
     Dates: start: 20040504

REACTIONS (2)
  - CONSTIPATION [None]
  - HYPERHIDROSIS [None]
